FAERS Safety Report 22135521 (Version 5)
Quarter: 2024Q1

REPORT INFORMATION
  Report Type: Report from Study
  Country: CA (occurrence: None)
  Receive Date: 20230324
  Receipt Date: 20240222
  Transmission Date: 20240410
  Serious: Yes (Other)
  Sender: FDA-Public Use
  Company Number: CA-PFIZER INC-202300122602

PATIENT
  Age: 52 Year
  Sex: Female

DRUGS (41)
  1. METHOTREXATE [Suspect]
     Active Substance: METHOTREXATE
     Indication: Product used for unknown indication
  2. METHOTREXATE [Suspect]
     Active Substance: METHOTREXATE
  3. METHOTREXATE [Suspect]
     Active Substance: METHOTREXATE
  4. COSENTYX [Suspect]
     Active Substance: SECUKINUMAB
     Indication: Psoriatic arthropathy
  5. COSENTYX [Suspect]
     Active Substance: SECUKINUMAB
  6. COSENTYX [Suspect]
     Active Substance: SECUKINUMAB
  7. COSENTYX [Suspect]
     Active Substance: SECUKINUMAB
  8. COSENTYX [Suspect]
     Active Substance: SECUKINUMAB
  9. COSENTYX [Suspect]
     Active Substance: SECUKINUMAB
  10. COSENTYX [Suspect]
     Active Substance: SECUKINUMAB
  11. COSENTYX [Suspect]
     Active Substance: SECUKINUMAB
  12. COSENTYX [Suspect]
     Active Substance: SECUKINUMAB
  13. COSENTYX [Suspect]
     Active Substance: SECUKINUMAB
  14. ROSUVASTATIN [Suspect]
     Active Substance: ROSUVASTATIN
     Indication: Product used for unknown indication
  15. NAPROXEN [Concomitant]
     Active Substance: NAPROXEN
  16. ASPIRIN [Concomitant]
     Active Substance: ASPIRIN
  17. PERCOCET [Concomitant]
     Active Substance: ACETAMINOPHEN\OXYCODONE HYDROCHLORIDE
  18. SULFASALAZINE [Concomitant]
     Active Substance: SULFASALAZINE
  19. PREDNISONE [Concomitant]
     Active Substance: PREDNISONE
  20. ASPIRIN [Concomitant]
     Active Substance: ASPIRIN
  21. BISOPROLOL [Concomitant]
     Active Substance: BISOPROLOL\BISOPROLOL FUMARATE
  22. BUDESONIDE [Concomitant]
     Active Substance: BUDESONIDE
  23. CHOLECALCIFEROL [Concomitant]
     Active Substance: CHOLECALCIFEROL
  24. CLONAZEPAM [Concomitant]
     Active Substance: CLONAZEPAM
  25. DOMPERIDONE [Concomitant]
     Active Substance: DOMPERIDONE
  26. EMPAGLIFLOZIN [Concomitant]
     Active Substance: EMPAGLIFLOZIN
  27. ENDOCET [Concomitant]
     Active Substance: ACETAMINOPHEN\OXYCODONE HYDROCHLORIDE
  28. FERROUS GLUCONATE [Concomitant]
     Active Substance: FERROUS GLUCONATE
  29. FORMOTEROL [Concomitant]
     Active Substance: FORMOTEROL
  30. LYRICA [Concomitant]
     Active Substance: PREGABALIN
  31. METFORMIN HYDROCHLORIDE\SITAGLIPTIN PHOSPHATE [Concomitant]
     Active Substance: METFORMIN HYDROCHLORIDE\SITAGLIPTIN PHOSPHATE
  32. MIRTAZAPINE [Concomitant]
     Active Substance: MIRTAZAPINE
  33. PANTOPRAZOLE [Concomitant]
     Active Substance: PANTOPRAZOLE
  34. RABEPRAZOLE SODIUM [Concomitant]
     Active Substance: RABEPRAZOLE SODIUM
  35. PERINDOPRIL ERBUMINE [Concomitant]
     Active Substance: PERINDOPRIL ERBUMINE
  36. QUETIAPINE FUMARATE [Concomitant]
     Active Substance: QUETIAPINE FUMARATE
  37. QUETIAPINE FUMARATE [Concomitant]
     Active Substance: QUETIAPINE FUMARATE
  38. SEMAGLUTIDE [Concomitant]
     Active Substance: SEMAGLUTIDE
  39. VENLAFAXINE HYDROCHLORIDE [Concomitant]
     Active Substance: VENLAFAXINE HYDROCHLORIDE
  40. VENTOLIN [Concomitant]
     Active Substance: ALBUTEROL SULFATE
  41. VITAMIN B12 [Concomitant]
     Active Substance: CYANOCOBALAMIN

REACTIONS (12)
  - Alanine aminotransferase increased [Not Recovered/Not Resolved]
  - C-reactive protein increased [Not Recovered/Not Resolved]
  - Colon cancer stage II [Not Recovered/Not Resolved]
  - Cough [Not Recovered/Not Resolved]
  - Heart rate increased [Not Recovered/Not Resolved]
  - Malaise [Not Recovered/Not Resolved]
  - Muscle spasms [Not Recovered/Not Resolved]
  - Pain in extremity [Not Recovered/Not Resolved]
  - Rash [Not Recovered/Not Resolved]
  - Swelling [Not Recovered/Not Resolved]
  - Peripheral swelling [Not Recovered/Not Resolved]
  - Platelet count decreased [Not Recovered/Not Resolved]
